FAERS Safety Report 4446983-5 (Version None)
Quarter: 2004Q3

REPORT INFORMATION
  Report Type: 
  Country: None (occurrence: None)
  Receive Date: 20040812
  Receipt Date: 20040419
  Transmission Date: 20050211
  Serious: No
  Sender: FDA-Public Use
  Company Number: USA040465371

PATIENT
  Age: 72 Year
  Sex: Male

DRUGS (3)
  1. CIALIS [Suspect]
     Indication: ERECTILE DYSFUNCTION
     Dosage: 20 MG
     Dates: start: 20040401, end: 20040401
  2. SINEMET [Concomitant]
  3. ELDEPRYL [Concomitant]

REACTIONS (1)
  - BLOOD PRESSURE DECREASED [None]
